FAERS Safety Report 20098719 (Version 1)
Quarter: 2021Q4

REPORT INFORMATION
  Report Type: Report from Study
  Country: CA (occurrence: CA)
  Receive Date: 20211122
  Receipt Date: 20211122
  Transmission Date: 20220303
  Serious: Yes (Death, Other)
  Sender: FDA-Public Use
  Company Number: CA-BRISTOL-MYERS SQUIBB COMPANY-BMS-2021-125027

PATIENT
  Age: 68 Year
  Sex: Female

DRUGS (1)
  1. NIVOLUMAB [Suspect]
     Active Substance: NIVOLUMAB
     Indication: Endometrial cancer
     Dosage: UNK
     Route: 065
     Dates: start: 20210520, end: 20210816

REACTIONS (1)
  - Death [Fatal]

NARRATIVE: CASE EVENT DATE: 20211019
